FAERS Safety Report 7712938-8 (Version None)
Quarter: 2011Q3

REPORT INFORMATION
  Report Type: 
  Country: None (occurrence: None)
  Receive Date: 20110826
  Receipt Date: 20110816
  Transmission Date: 20111222
  Serious: Yes (Other)
  Sender: FDA-Public Use
  Company Number: PHHY2011SI45659

PATIENT
  Age: 78 Year
  Sex: Female

DRUGS (1)
  1. EXJADE [Suspect]
     Indication: IRON OVERLOAD
     Dosage: 1500 MG, QD
     Route: 048
     Dates: start: 20090420

REACTIONS (3)
  - WHITE BLOOD CELL COUNT DECREASED [None]
  - PLATELET COUNT DECREASED [None]
  - HAEMOGLOBIN DECREASED [None]
